FAERS Safety Report 15766643 (Version 5)
Quarter: 2019Q2

REPORT INFORMATION
  Report Type: Spontaneous
  Country: GR (occurrence: GR)
  Receive Date: 20181227
  Receipt Date: 20190520
  Transmission Date: 20190711
  Serious: Yes (Hospitalization)
  Sender: FDA-Public Use
  Company Number: GR-PFIZER INC-2018521986

PATIENT
  Age: 37 Year
  Sex: Male

DRUGS (5)
  1. ASPIRIN [ACETYLSALICYLIC ACID] [Suspect]
     Active Substance: ASPIRIN
     Dosage: 40 TABS
  2. IBUPROFEN. [Suspect]
     Active Substance: IBUPROFEN
     Dosage: 20 TABS
  3. ALCOHOL. [Suspect]
     Active Substance: ALCOHOL
     Dosage: HIGH DOSE
  4. PARACETAMOL [Suspect]
     Active Substance: ACETAMINOPHEN
     Dosage: 40 TABS
  5. NIMESULID [Suspect]
     Active Substance: NIMESULIDE
     Dosage: 10 TABS

REACTIONS (4)
  - Transaminases increased [Recovering/Resolving]
  - Confusional state [Recovering/Resolving]
  - Hepatic lesion [Recovering/Resolving]
  - Overdose [Recovering/Resolving]
